FAERS Safety Report 18858102 (Version 13)
Quarter: 2022Q2

REPORT INFORMATION
  Report Type: Report from Study
  Country: US (occurrence: US)
  Receive Date: 20210208
  Receipt Date: 20220614
  Transmission Date: 20220720
  Serious: Yes (Hospitalization, Other)
  Sender: FDA-Public Use
  Company Number: US-TAKEDA-2021TUS006359

PATIENT
  Sex: Female
  Weight: 106 kg

DRUGS (52)
  1. HUMAN IMMUNOGLOBULIN G [Suspect]
     Active Substance: HUMAN IMMUNOGLOBULIN G
     Indication: Immunodeficiency common variable
     Dosage: 50 GRAM, Q4WEEKS
     Route: 042
     Dates: start: 20210127
  2. HUMAN IMMUNOGLOBULIN G [Suspect]
     Active Substance: HUMAN IMMUNOGLOBULIN G
     Dosage: 50 GRAM, Q4WEEKS
     Route: 042
     Dates: start: 20210127
  3. HUMAN IMMUNOGLOBULIN G [Suspect]
     Active Substance: HUMAN IMMUNOGLOBULIN G
     Dosage: 50 GRAM, Q4WEEKS
     Route: 042
     Dates: start: 20210223
  4. COVID-19 VACCINE NOS [Suspect]
     Active Substance: COVID-19 VACCINE NOS
     Indication: COVID-19 immunisation
     Route: 065
  5. ACETAMINOPHEN [Concomitant]
     Active Substance: ACETAMINOPHEN
     Dosage: UNK
     Route: 065
  6. DIPHENHYDRAMINE [Concomitant]
     Active Substance: DIPHENHYDRAMINE
     Dosage: UNK
     Route: 065
  7. FAMOTIDINE [Concomitant]
     Active Substance: FAMOTIDINE
     Dosage: UNK
     Route: 065
  8. LORATADINE [Concomitant]
     Active Substance: LORATADINE
     Route: 065
  9. SODIUM CHLORIDE [Concomitant]
     Active Substance: SODIUM CHLORIDE
     Route: 065
  10. EPINEPHRINE [Concomitant]
     Active Substance: EPINEPHRINE
     Route: 065
  11. POTASSIUM CHLORIDE [Concomitant]
     Active Substance: POTASSIUM CHLORIDE
     Route: 065
  12. XELJANZ [Concomitant]
     Active Substance: TOFACITINIB CITRATE
     Route: 065
  13. CLARITHROMYCIN [Concomitant]
     Active Substance: CLARITHROMYCIN
     Route: 065
  14. PREDNISONE [Concomitant]
     Active Substance: PREDNISONE
     Route: 065
  15. PRAVASTATIN [Concomitant]
     Active Substance: PRAVASTATIN
     Route: 065
  16. FENOFIBRATE [Concomitant]
     Active Substance: FENOFIBRATE
     Route: 065
  17. TRESIBA [Concomitant]
     Active Substance: INSULIN DEGLUDEC
     Route: 065
  18. OZEMPIC [Concomitant]
     Active Substance: SEMAGLUTIDE
     Route: 065
  19. NOVOLOG [Concomitant]
     Active Substance: INSULIN ASPART
     Route: 065
  20. CHOLESTYRAMINE [Concomitant]
     Active Substance: CHOLESTYRAMINE
     Route: 065
  21. LANSOPRAZOLE [Concomitant]
     Active Substance: LANSOPRAZOLE
     Route: 065
  22. AMILORIDE HCL [Concomitant]
     Active Substance: AMILORIDE HYDROCHLORIDE
     Route: 065
  23. HYDROCHLOROTHIAZIDE [Concomitant]
     Active Substance: HYDROCHLOROTHIAZIDE
     Route: 065
  24. VALACYCLOVIR [Concomitant]
     Active Substance: VALACYCLOVIR HYDROCHLORIDE
     Route: 065
  25. FLUCONAZOLE [Concomitant]
     Active Substance: FLUCONAZOLE
     Route: 065
  26. BIOTIN [Concomitant]
     Active Substance: BIOTIN
     Route: 065
  27. CALCIUM 600 + D3 PLUS MINERALS [Concomitant]
     Route: 065
  28. LOSARTAN [Concomitant]
     Active Substance: LOSARTAN
     Route: 065
  29. OXYCODONE [Concomitant]
     Active Substance: OXYCODONE
     Route: 065
  30. GABAPENTIN [Concomitant]
     Active Substance: GABAPENTIN
     Route: 065
  31. FUROSEMIDE [Concomitant]
     Active Substance: FUROSEMIDE
     Route: 065
  32. XARELTO [Concomitant]
     Active Substance: RIVAROXABAN
     Route: 065
  33. FOLIC ACID [Concomitant]
     Active Substance: FOLIC ACID
     Route: 065
  34. B12 ACTIVE [Concomitant]
     Route: 065
  35. RECLAST [Concomitant]
     Active Substance: ZOLEDRONIC ACID
     Route: 065
  36. COMBIVENT [Concomitant]
     Active Substance: ALBUTEROL SULFATE\IPRATROPIUM BROMIDE
     Route: 065
  37. CALCIUM [Concomitant]
     Active Substance: CALCIUM
     Route: 065
  38. VITAMIN D3 [Concomitant]
     Active Substance: CHOLECALCIFEROL
     Route: 065
  39. PILOCARPINE [Concomitant]
     Active Substance: PILOCARPINE
     Route: 065
  40. PRIVIGEN [Concomitant]
     Active Substance: HUMAN IMMUNOGLOBULIN G
     Route: 065
  41. FERROUS SULFATE [Concomitant]
     Active Substance: FERROUS SULFATE
     Route: 065
  42. VITAMIN B COMPLEX [Concomitant]
     Active Substance: CYANOCOBALAMIN\DEXPANTHENOL\NIACINAMIDE\PYRIDOXINE HYDROCHLORIDE\RIBOFLAVIN 5^-PHOSPHATE SODIUM\THIA
     Indication: Product used for unknown indication
     Route: 065
  43. PILOCARPINE HYDROCHLORIDE [Concomitant]
     Active Substance: PILOCARPINE HYDROCHLORIDE
  44. PRAVASTATIN SODIUM [Concomitant]
     Active Substance: PRAVASTATIN SODIUM
  45. AMILORIDE HCL [Concomitant]
     Active Substance: AMILORIDE HYDROCHLORIDE
  46. OXYCODONE HYDROCHLORIDE [Concomitant]
     Active Substance: OXYCODONE HYDROCHLORIDE
  47. LOSARTAN POTASSIUM [Concomitant]
     Active Substance: LOSARTAN POTASSIUM
  48. ALBUTEROL SULFATE [Concomitant]
     Active Substance: ALBUTEROL SULFATE
  49. LOTEPREDNOL [Concomitant]
     Active Substance: LOTEPREDNOL
  50. VITAMIN B12 [Concomitant]
     Active Substance: CYANOCOBALAMIN
  51. SODIUM [Concomitant]
     Active Substance: SODIUM
  52. BACLOFEN [Concomitant]
     Active Substance: BACLOFEN

REACTIONS (16)
  - Cellulitis [Unknown]
  - Foot operation [Unknown]
  - Dyspnoea [Unknown]
  - Foot fracture [Recovering/Resolving]
  - Tendon rupture [Recovering/Resolving]
  - Neuropathy peripheral [Unknown]
  - Fall [Unknown]
  - Tinnitus [Unknown]
  - COVID-19 immunisation [Unknown]
  - Swelling [Unknown]
  - Pyrexia [Unknown]
  - Pain [Unknown]
  - Sinusitis [Unknown]
  - Chills [Unknown]
  - Infusion related reaction [Unknown]
  - Therapy interrupted [Unknown]
